FAERS Safety Report 7648628-X (Version None)
Quarter: 2011Q3

REPORT INFORMATION
  Report Type: 
  Country: None (occurrence: None)
  Receive Date: 20110801
  Receipt Date: 20110720
  Transmission Date: 20111222
  Serious: Yes (Other)
  Sender: FDA-Public Use
  Company Number: PHHY2010US87997

PATIENT
  Sex: Female
  Weight: 79.365 kg

DRUGS (1)
  1. RECLAST [Suspect]
     Indication: OSTEOPOROSIS POSTMENOPAUSAL
     Dosage: UNK
     Route: 042
     Dates: start: 20090204

REACTIONS (4)
  - OSTEOPOROSIS [None]
  - EXPOSURE TO TOXIC AGENT [None]
  - INFLUENZA LIKE ILLNESS [None]
  - FRUSTRATION [None]
